FAERS Safety Report 9767137 (Version 1)
Quarter: 2013Q4

REPORT INFORMATION
  Report Type: Spontaneous
  Country: US (occurrence: None)
  Receive Date: 20131216
  Receipt Date: 20131216
  Transmission Date: 20140711
  Serious: Yes (Other)
  Sender: FDA-Public Use
  Company Number: None

PATIENT
  Age: 34 Year
  Sex: Female
  Weight: 113.4 kg

DRUGS (1)
  1. OPANA ER [Suspect]
     Dosage: 40MG AND 20MG TABLETS ONE P.O. Q12HOURS FOR PAIN

REACTIONS (2)
  - Product substitution issue [None]
  - Inadequate analgesia [None]
